FAERS Safety Report 7626767-7 (Version None)
Quarter: 2011Q3

REPORT INFORMATION
  Report Type: 
  Country: None (occurrence: None)
  Receive Date: 20110721
  Receipt Date: 20110708
  Transmission Date: 20111222
  Serious: Yes (Other)
  Sender: FDA-Public Use
  Company Number: ES-UCBSA-036883

PATIENT
  Sex: Male

DRUGS (2)
  1. KEPPRA [Suspect]
     Indication: EPILEPSY
  2. CARBAMAZEPINE [Suspect]

REACTIONS (2)
  - DRUG RASH WITH EOSINOPHILIA AND SYSTEMIC SYMPTOMS [None]
  - LEUKOPENIA [None]
